FAERS Safety Report 14215707 (Version 1)
Quarter: 2017Q4

REPORT INFORMATION
  Report Type: Spontaneous
  Country: DE (occurrence: DE)
  Receive Date: 20171122
  Receipt Date: 20171122
  Transmission Date: 20180321
  Serious: Yes (Congenital Anomaly)
  Sender: FDA-Public Use
  Company Number: DE-ABBVIE-17P-062-2171325-00

PATIENT
  Sex: Female

DRUGS (2)
  1. ERGENYL CHRONO [Suspect]
     Active Substance: VALPROIC ACID
     Indication: MATERNAL EXPOSURE TIMING UNSPECIFIED
     Route: 064
  2. VALPROATE CHRONO [Suspect]
     Active Substance: VALPROATE SODIUM
     Indication: MATERNAL EXPOSURE TIMING UNSPECIFIED
     Route: 064

REACTIONS (5)
  - Sensory disturbance [Not Recovered/Not Resolved]
  - Mental disability [Not Recovered/Not Resolved]
  - Foetal exposure during pregnancy [Unknown]
  - Hypokinesia [Not Recovered/Not Resolved]
  - Muscle tone disorder [Not Recovered/Not Resolved]
